FAERS Safety Report 5530892-4 (Version None)
Quarter: 2007Q4

REPORT INFORMATION
  Report Type: 
  Country: None (occurrence: None)
  Receive Date: 20071130
  Receipt Date: 20071127
  Transmission Date: 20080405
  Serious: Yes (Life-Threatening, Hospitalization)
  Sender: FDA-Public Use
  Company Number: CN-ASTRAZENECA-2007AP07438

PATIENT
  Age: 38 Year
  Sex: Female

DRUGS (12)
  1. PROPOFOL [Suspect]
     Indication: ANAESTHESIA
     Route: 042
  2. FENTANYL [Suspect]
     Indication: ANAESTHESIA
     Dosage: DOSE ADMINISTERED TWICE
     Route: 042
  3. MIDAZOLAM HCL [Suspect]
     Indication: ANAESTHESIA
     Dosage: DOSE ADMINISTERED TWICE
     Route: 042
  4. LUMINAL [Concomitant]
     Indication: ANAESTHESIA
     Route: 030
  5. ATROPINE [Concomitant]
     Indication: ANAESTHESIA
     Route: 030
  6. LIDOCAINE [Concomitant]
     Indication: ANAESTHESIA
     Dosage: 3 ML
     Route: 008
  7. LIDOCAINE [Concomitant]
     Dosage: 10 ML
     Route: 008
  8. LIDOCAINE [Concomitant]
     Dosage: 8 ML
     Route: 008
  9. BUPIVACAINE [Concomitant]
     Indication: ANAESTHESIA
     Dosage: 10 ML
     Route: 008
  10. BUPIVACAINE [Concomitant]
     Dosage: 8 ML
     Route: 008
  11. ADRENALINE [Concomitant]
     Indication: ANAESTHESIA
     Dosage: 1:200,000
     Route: 008
  12. ADRENALINE [Concomitant]
     Dosage: 1:200,000
     Route: 008

REACTIONS (2)
  - CARDIAC ARREST [None]
  - RESPIRATORY ARREST [None]
